FAERS Safety Report 9515148 (Version 1)
Quarter: 2013Q1

REPORT INFORMATION
  Report Type: Spontaneous
  Country: US (occurrence: None)
  Receive Date: 20130305
  Receipt Date: 20130305
  Transmission Date: 20140127
  Serious: Yes (Other)
  Sender: FDA-Public Use
  Company Number: 163-21880-12121073

PATIENT
  Age: 65 Year
  Sex: Male
  Weight: 95.26 kg

DRUGS (8)
  1. REVLIMID [Suspect]
     Indication: PLASMA CELL MYELOMA
     Route: 048
     Dates: start: 20120403
  2. COLACE (DOCUSATE SODIUM) (CAPSULES) [Concomitant]
  3. CRESTOR (ROSUVASTATIN) (TABLETS) [Concomitant]
  4. DIGOXIN (DIGOXIN) [Concomitant]
  5. ENALAPRIL MALEATE (ENALAPRIL MALEATE) (UNKNOWN) [Concomitant]
  6. FUROSEMIDE (FUROSEMIDE) [Concomitant]
  7. PLAVIX (CLOPIDOGREL SULFATE) [Concomitant]
  8. PANTOPRAZOLE SODIUM (PANTOPRAZOLE SODIUM) (UNKNOWN) [Concomitant]

REACTIONS (1)
  - Pain in extremity [None]
